FAERS Safety Report 21838975 (Version 2)
Quarter: 2023Q1

REPORT INFORMATION
  Report Type: Spontaneous
  Country: US (occurrence: US)
  Receive Date: 20230109
  Receipt Date: 20230213
  Transmission Date: 20230418
  Serious: No
  Sender: FDA-Public Use
  Company Number: US-GE HEALTHCARE-2022CSU008745

PATIENT
  Age: 73 Year
  Sex: Male

DRUGS (3)
  1. DATSCAN [Suspect]
     Active Substance: IODINE\IOFLUPANE I-123
     Indication: Diagnostic procedure
     Dosage: 172.79 MBQ, SINGLE
     Route: 042
     Dates: start: 20221129, end: 20221129
  2. DATSCAN [Suspect]
     Active Substance: IODINE\IOFLUPANE I-123
     Indication: Product used for unknown indication
  3. IOSAT [Concomitant]
     Active Substance: POTASSIUM IODIDE
     Dosage: ONE, 1 HR PRIOR TO INJECTION
     Route: 065
     Dates: start: 20221129, end: 20221129

REACTIONS (2)
  - Drug ineffective [Recovered/Resolved]
  - No adverse event [Recovered/Resolved]

NARRATIVE: CASE EVENT DATE: 20221129
